FAERS Safety Report 6382669-8 (Version None)
Quarter: 2009Q3

REPORT INFORMATION
  Report Type: 
  Country: None (occurrence: None)
  Receive Date: 20090928
  Receipt Date: 20090928
  Transmission Date: 20100115
  Serious: Yes (Life-Threatening)
  Sender: FDA-Public Use
  Company Number: None

PATIENT
  Sex: Female

DRUGS (2)
  1. PROPOFOL [Suspect]
     Dosage: ONE TIME ONLY IV BOLUS
     Route: 040
     Dates: start: 20090123
  2. FENTANYL [Suspect]
     Dosage: ONE TIME ONLY IV BOLUS
     Route: 040
     Dates: start: 20090123

REACTIONS (3)
  - AGGRESSION [None]
  - ANAESTHETIC COMPLICATION [None]
  - OXYGEN SATURATION DECREASED [None]
